FAERS Safety Report 11073201 (Version 3)
Quarter: 2015Q3

REPORT INFORMATION
  Report Type: Spontaneous
  Country: US (occurrence: US)
  Receive Date: 20150428
  Receipt Date: 20150720
  Transmission Date: 20151125
  Serious: No
  Sender: FDA-Public Use
  Company Number: US-GILEAD-2015-0149419

PATIENT
  Age: 58 Year
  Sex: Male
  Weight: 74.83 kg

DRUGS (4)
  1. HARVONI [Suspect]
     Active Substance: LEDIPASVIR\SOFOSBUVIR
     Indication: HEPATITIS C
     Dosage: 1 DF, UNK
     Route: 048
     Dates: start: 20150323, end: 20150413
  2. XANAX [Concomitant]
     Active Substance: ALPRAZOLAM
     Dosage: 2 DF, TID
     Route: 048
  3. METHADONE [Concomitant]
     Active Substance: METHADONE HYDROCHLORIDE
     Dosage: 20 MG, BID
     Route: 048
  4. OXYCODONE [Concomitant]
     Active Substance: OXYCODONE
     Dosage: 15 MG, PRN
     Route: 048

REACTIONS (4)
  - Pain in extremity [Unknown]
  - Agitation [Unknown]
  - Muscle twitching [Unknown]
  - Muscle spasms [Unknown]

NARRATIVE: CASE EVENT DATE: 20150323
